FAERS Safety Report 26010422 (Version 1)
Quarter: 2025Q4

REPORT INFORMATION
  Report Type: Spontaneous
  Country: EU (occurrence: EU)
  Receive Date: 20251107
  Receipt Date: 20251107
  Transmission Date: 20260118
  Serious: Yes (Other)
  Sender: TEVA
  Company Number: None

PATIENT
  Sex: Male

DRUGS (2)
  1. DIAZEPAM [Suspect]
     Active Substance: DIAZEPAM
     Indication: Product used for unknown indication
     Route: 065
     Dates: start: 20250719
  2. KETAMINE [Suspect]
     Active Substance: KETAMINE
     Indication: Product used for unknown indication
     Dosage: KETAMINE NON-MEDICINAL (NO FURTHER INFORMATION)
     Route: 065
     Dates: start: 20250719

REACTIONS (2)
  - Drug abuse [Recovering/Resolving]
  - High risk sexual behaviour [Recovering/Resolving]

NARRATIVE: CASE EVENT DATE: 20250719
